FAERS Safety Report 4307184-4 (Version None)
Quarter: 2004Q1

REPORT INFORMATION
  Report Type: 
  Country: None (occurrence: None)
  Receive Date: 20040225
  Receipt Date: 20040205
  Transmission Date: 20041129
  Serious: Yes (Hospitalization)
  Sender: FDA-Public Use
  Company Number: USA031153333

PATIENT
  Age: 59 Year
  Sex: Female
  Weight: 59 kg

DRUGS (4)
  1. STRATTERA [Suspect]
     Indication: ATTENTION DEFICIT/HYPERACTIVITY DISORDER
     Dosage: 25 MG/DAY
     Dates: start: 20031101
  2. CELEXA [Concomitant]
  3. PREMARIN [Concomitant]
  4. FISH OIL [Concomitant]

REACTIONS (4)
  - DECREASED APPETITE [None]
  - DISEASE RECURRENCE [None]
  - HYPERHIDROSIS [None]
  - PNEUMONIA [None]
